FAERS Safety Report 9765052 (Version 1)
Quarter: 2013Q4

REPORT INFORMATION
  Report Type: Spontaneous
  Country: US (occurrence: None)
  Receive Date: 20131213
  Receipt Date: 20131213
  Transmission Date: 20140711
  Serious: Yes (Disabling)
  Sender: FDA-Public Use
  Company Number: None

PATIENT
  Sex: 0

DRUGS (1)
  1. DORYX [Suspect]
     Indication: ACNE
     Dosage: 1 PER DAY, EMPTY STOMACH ONCE DAILY TAKEN BY MOUTH
     Route: 048

REACTIONS (4)
  - Dry skin [None]
  - Skin fissures [None]
  - Haemorrhage [None]
  - Pain [None]
